FAERS Safety Report 10196713 (Version 2)
Quarter: 2014Q2

REPORT INFORMATION
  Report Type: Spontaneous
  Country: JP (occurrence: JP)
  Receive Date: 20140527
  Receipt Date: 20140527
  Transmission Date: 20141212
  Serious: Yes (Other)
  Sender: FDA-Public Use
  Company Number: JP-PFIZER INC-2014131943

PATIENT
  Age: 89 Year
  Sex: Female

DRUGS (7)
  1. CELECOX [Suspect]
     Dosage: 200 MG, 1X/DAY
     Route: 048
     Dates: end: 20140318
  2. NESINA [Concomitant]
     Dosage: UNK
     Route: 048
  3. LIVALO [Concomitant]
     Dosage: UNK
     Route: 048
  4. AMLODIPINE [Concomitant]
     Dosage: UNK
     Route: 048
  5. EPADEL-S [Concomitant]
     Dosage: UNK
     Route: 048
     Dates: end: 20140318
  6. MAGLAX [Concomitant]
     Dosage: UNK
     Route: 048
  7. BENET [Concomitant]
     Dosage: UNK
     Route: 048

REACTIONS (1)
  - Tremor [Not Recovered/Not Resolved]
